FAERS Safety Report 17326633 (Version 6)
Quarter: 2020Q2

REPORT INFORMATION
  Report Type: Report from Study
  Country: GB (occurrence: GB)
  Receive Date: 20200127
  Receipt Date: 20200520
  Transmission Date: 20200713
  Serious: Yes (Hospitalization, Other)
  Sender: FDA-Public Use
  Company Number: GB-MYLANLABS-2020M1008001

PATIENT
  Age: 8 Year
  Sex: Female
  Weight: 23.35 kg

DRUGS (15)
  1. EVEROLIMUS. [Suspect]
     Active Substance: EVEROLIMUS
     Dosage: 5 MG ON MONDAY, WEDNESDAY AND FRIDAY AND 2.5 MG ON TUESDAY
     Route: 048
     Dates: start: 20191018, end: 20200207
  2. PARACETAMOL [Concomitant]
     Active Substance: ACETAMINOPHEN
     Dosage: UNK UNK, QD PM
     Route: 048
  3. VANDETANIB. [Suspect]
     Active Substance: VANDETANIB
     Dosage: 100 MG, QOD,(65MG/M2)
     Route: 048
     Dates: start: 20191008, end: 20200207
  4. VANDETANIB. [Suspect]
     Active Substance: VANDETANIB
     Dosage: 65 MG/M2, QD
     Dates: start: 20200316, end: 20200420
  5. COTRIMOXAZOLE [Concomitant]
     Active Substance: SULFAMETHOXAZOLE\TRIMETHOPRIM
     Dosage: 360 MG BD ON SAT/SUN ONLY
     Route: 065
  6. RANITIDINE. [Concomitant]
     Active Substance: RANITIDINE
     Dosage: 50 MILLIGRAM, BID
     Route: 065
     Dates: start: 20191018
  7. EVEROLIMUS. [Suspect]
     Active Substance: EVEROLIMUS
     Indication: BRAIN STEM GLIOMA
     Dosage: 5 MG ON MONDAY, WEDNESDAY AND FRIDAY AND 2.5 MG
     Route: 048
     Dates: start: 20190717, end: 20191014
  8. VANDETANIB. [Suspect]
     Active Substance: VANDETANIB
     Indication: BRAIN STEM GLIOMA
     Dosage: 100 MG, QOD,(65MG/M2)
     Route: 048
     Dates: start: 20191009, end: 20191014
  9. VANDETANIB. [Suspect]
     Active Substance: VANDETANIB
     Dosage: 100 MG, QOD
     Route: 048
     Dates: start: 20200212, end: 20200302
  10. DEXAMETHASONE. [Concomitant]
     Active Substance: DEXAMETHASONE
     Indication: PRODUCT USED FOR UNKNOWN INDICATION
     Dosage: VARIABLE; 4MG BD WEANED TO 0.5MG SECOND DAILY
     Route: 065
     Dates: start: 20191101, end: 20200221
  11. LOPERAMIDE [Concomitant]
     Active Substance: LOPERAMIDE
     Indication: DIARRHOEA
     Dosage: 2 MG ONE CAPSULE UP TO FOUR TIMES A DAY
     Route: 065
  12. COTRIMOXAZOLE [Concomitant]
     Active Substance: SULFAMETHOXAZOLE\TRIMETHOPRIM
     Dosage: 360 MG BD ON SAT/SUN ONLY
     Route: 048
  13. EVEROLIMUS. [Suspect]
     Active Substance: EVEROLIMUS
     Dosage: UNK, QD (5 MG ON MONDAY, WEDNESDAY AND FRIDAY AND 2.5 MG ON TUESDAY, THURSDAY, SATURDAY AND SUNDAY)
     Route: 048
     Dates: start: 20191001
  14. EVEROLIMUS. [Suspect]
     Active Substance: EVEROLIMUS
     Dosage: 5 UNK
     Route: 048
     Dates: start: 20200212
  15. VANDETANIB. [Suspect]
     Active Substance: VANDETANIB
     Dosage: 100 MG, QOD,(65MG/M2)
     Route: 048
     Dates: start: 20191018, end: 20200207

REACTIONS (19)
  - Ocular hyperaemia [Recovered/Resolved]
  - Neutrophil count decreased [Recovered/Resolved]
  - Lymphocyte count decreased [Not Recovered/Not Resolved]
  - Ataxia [Recovered/Resolved]
  - Abdominal distension [Recovered/Resolved]
  - Electrocardiogram QT prolonged [Recovered/Resolved]
  - Facial paralysis [Not Recovered/Not Resolved]
  - White blood cell count decreased [Not Recovered/Not Resolved]
  - Hemiparesis [Recovered/Resolved]
  - Reflux gastritis [Recovered/Resolved]
  - Stomatitis [Recovered/Resolved]
  - Blood creatinine increased [Recovered/Resolved]
  - Product use in unapproved indication [Unknown]
  - Myoclonus [Recovered/Resolved]
  - Blood cholesterol increased [Not Recovered/Not Resolved]
  - Alanine aminotransferase increased [Recovered/Resolved]
  - Flatulence [Recovered/Resolved]
  - Hypophosphataemia [Recovered/Resolved]
  - Hypertension [Not Recovered/Not Resolved]

NARRATIVE: CASE EVENT DATE: 20190730
